FAERS Safety Report 13531672 (Version 1)
Quarter: 2017Q2

REPORT INFORMATION
  Report Type: Spontaneous
  Country: US (occurrence: US)
  Receive Date: 20170510
  Receipt Date: 20170510
  Transmission Date: 20170830
  Serious: Yes (Disabling)
  Sender: FDA-Public Use
  Company Number: None

PATIENT
  Age: 19 Year
  Sex: Female
  Weight: 63.11 kg

DRUGS (5)
  1. VYVANSE [Concomitant]
     Active Substance: LISDEXAMFETAMINE DIMESYLATE
  2. INVOKANA [Concomitant]
     Active Substance: CANAGLIFLOZIN
  3. PARAGARD T 380A [Suspect]
     Active Substance: COPPER
  4. SPIRLONADACTONE [Concomitant]
  5. METFORMIN [Concomitant]
     Active Substance: METFORMIN HYDROCHLORIDE

REACTIONS (5)
  - Affective disorder [None]
  - Heart rate increased [None]
  - Anxiety [None]
  - Uterine haemorrhage [None]
  - Panic attack [None]

NARRATIVE: CASE EVENT DATE: 20160727
